FAERS Safety Report 11647738 (Version 1)
Quarter: 2015Q4

REPORT INFORMATION
  Report Type: Spontaneous
  Country: US (occurrence: US)
  Receive Date: 20151021
  Receipt Date: 20151021
  Transmission Date: 20160304
  Serious: Yes (Other)
  Sender: FDA-Public Use
  Company Number: US-ASTRAZENECA-2015SE99308

PATIENT
  Age: 47 Year
  Sex: Male
  Weight: 97.1 kg

DRUGS (19)
  1. WARFARIN [Concomitant]
     Active Substance: WARFARIN
  2. FLEXERIL [Concomitant]
     Active Substance: CYCLOBENZAPRINE HYDROCHLORIDE
  3. IMDUR [Concomitant]
     Active Substance: ISOSORBIDE MONONITRATE
  4. IMDUR [Concomitant]
     Active Substance: ISOSORBIDE MONONITRATE
  5. LASIX [Concomitant]
     Active Substance: FUROSEMIDE
  6. VITAMIN E [Concomitant]
     Active Substance: .ALPHA.-TOCOPHEROL
  7. CRESTOR [Suspect]
     Active Substance: ROSUVASTATIN CALCIUM
     Route: 048
  8. LOMITAPIDE [Suspect]
     Active Substance: LOMITAPIDE MESYLATE
     Indication: TYPE IIA HYPERLIPIDAEMIA
     Route: 048
     Dates: start: 20140716, end: 20141215
  9. AMITRIPTYLINE [Concomitant]
     Active Substance: AMITRIPTYLINE
  10. METHADONE [Concomitant]
     Active Substance: METHADONE HYDROCHLORIDE
  11. OMEGA 3 [Concomitant]
     Active Substance: OMEGA-3 FATTY ACIDS
  12. BACTRIM [Concomitant]
     Active Substance: SULFAMETHOXAZOLE\TRIMETHOPRIM
  13. COREG [Concomitant]
     Active Substance: CARVEDILOL
  14. LASIX [Concomitant]
     Active Substance: FUROSEMIDE
  15. PRILOSEC [Suspect]
     Active Substance: OMEPRAZOLE MAGNESIUM
     Route: 048
  16. GLYCERYL TRINITRATE [Concomitant]
     Active Substance: NITROGLYCERIN
  17. LIPITOR [Suspect]
     Active Substance: ATORVASTATIN CALCIUM
     Indication: PRODUCT USED FOR UNKNOWN INDICATION
     Route: 065
     Dates: end: 201411
  18. LOMITAPIDE [Suspect]
     Active Substance: LOMITAPIDE MESYLATE
     Indication: TYPE IIA HYPERLIPIDAEMIA
     Route: 048
     Dates: start: 20150116
  19. VASOTEC [Concomitant]
     Active Substance: ENALAPRIL MALEATE

REACTIONS (11)
  - Hepatic steatosis [Unknown]
  - Therapy cessation [Unknown]
  - Alanine aminotransferase increased [Unknown]
  - Gastritis [Unknown]
  - Hiatus hernia [Unknown]
  - Drug hypersensitivity [Unknown]
  - Abdominal pain [Recovered/Resolved]
  - Flatulence [Unknown]
  - Abdominal pain upper [Unknown]
  - Oesophagitis [Unknown]
  - Gastrooesophageal reflux disease [Unknown]

NARRATIVE: CASE EVENT DATE: 20141114
